FAERS Safety Report 19042210 (Version 33)
Quarter: 2023Q4

REPORT INFORMATION
  Report Type: Report from Study
  Country: AR (occurrence: AR)
  Receive Date: 20210322
  Receipt Date: 20231228
  Transmission Date: 20240109
  Serious: Yes (Other)
  Sender: FDA-Public Use
  Company Number: NVSC2021AR032478

PATIENT
  Age: 41 Year
  Sex: Female

DRUGS (10)
  1. COSENTYX [Suspect]
     Active Substance: SECUKINUMAB
     Indication: Psoriasis
     Dosage: 300 MG, QMO
     Route: 058
     Dates: start: 20191227
  2. COSENTYX [Suspect]
     Active Substance: SECUKINUMAB
     Indication: Psoriatic arthropathy
     Dosage: 300 MG, QMO
     Route: 065
     Dates: start: 201912, end: 20211020
  3. COSENTYX [Suspect]
     Active Substance: SECUKINUMAB
     Dosage: 300 MG, QMO
     Route: 058
  4. COSENTYX [Suspect]
     Active Substance: SECUKINUMAB
     Dosage: 300 MG, QMO
     Route: 058
  5. COSENTYX [Suspect]
     Active Substance: SECUKINUMAB
     Dosage: UNK
     Route: 003
  6. COSENTYX [Suspect]
     Active Substance: SECUKINUMAB
     Dosage: 300 MG, QMO
     Route: 058
  7. COSENTYX [Suspect]
     Active Substance: SECUKINUMAB
     Dosage: 300 MG, QMO
     Route: 058
  8. COSENTYX [Suspect]
     Active Substance: SECUKINUMAB
     Dosage: 300 MG, QMO
     Route: 065
  9. COSENTYX [Suspect]
     Active Substance: SECUKINUMAB
     Dosage: 300 MG, QMO
     Route: 058
  10. COSENTYX [Suspect]
     Active Substance: SECUKINUMAB
     Dosage: 300 MG, QMO
     Route: 058

REACTIONS (38)
  - Diabetes mellitus [Unknown]
  - Blood glucose increased [Unknown]
  - Psoriasis [Recovered/Resolved]
  - Peripheral swelling [Unknown]
  - Muscle spasms [Unknown]
  - Carpal tunnel syndrome [Unknown]
  - Limb injury [Unknown]
  - Photosensitivity reaction [Unknown]
  - Inflammation [Unknown]
  - Pigmentation disorder [Unknown]
  - Blister [Unknown]
  - Dry skin [Unknown]
  - Acne [Unknown]
  - Skin lesion [Unknown]
  - Pruritus [Unknown]
  - Road traffic accident [Unknown]
  - Fall [Unknown]
  - Scratch [Unknown]
  - Back injury [Unknown]
  - Nervousness [Unknown]
  - Skin haemorrhage [Unknown]
  - Rash macular [Unknown]
  - Psoriasis [Not Recovered/Not Resolved]
  - Urticaria [Unknown]
  - Injury [Unknown]
  - Pain in extremity [Unknown]
  - Arthralgia [Unknown]
  - Gait inability [Unknown]
  - Limb discomfort [Unknown]
  - Arthropathy [Unknown]
  - Bone disorder [Unknown]
  - Spinal disorder [Unknown]
  - Bone pain [Unknown]
  - Finger deformity [Unknown]
  - Pain [Unknown]
  - Product supply issue [Unknown]
  - Incorrect route of product administration [Unknown]
  - Drug ineffective [Unknown]

NARRATIVE: CASE EVENT DATE: 20210201
